FAERS Safety Report 8097856-0 (Version None)
Quarter: 2012Q1

REPORT INFORMATION
  Report Type: 
  Country: None (occurrence: None)
  Receive Date: 20120128
  Receipt Date: 20110816
  Transmission Date: 20120608
  Serious: No
  Sender: FDA-Public Use
  Company Number: US-ABBOTT-11P-163-0846573-00

PATIENT
  Sex: Male

DRUGS (2)
  1. HUMIRA [Suspect]
     Dosage: ON DAY 8
     Dates: start: 20110801, end: 20110801
  2. HUMIRA [Suspect]
     Indication: PSORIASIS
     Dosage: ON DAY 1
     Dates: start: 20110801, end: 20110801

REACTIONS (2)
  - HEADACHE [None]
  - FATIGUE [None]
